FAERS Safety Report 24194282 (Version 1)
Quarter: 2024Q3

REPORT INFORMATION
  Report Type: Spontaneous
  Country: US (occurrence: None)
  Receive Date: 20240808
  Receipt Date: 20240808
  Transmission Date: 20241017
  Serious: Yes (Hospitalization, Other)
  Sender: Public
  Company Number: None

PATIENT
  Age: 19 Year
  Sex: Female
  Weight: 58.5 kg

DRUGS (2)
  1. AIMOVIG [Suspect]
     Active Substance: ERENUMAB-AOOE
     Indication: Migraine prophylaxis
     Dosage: OTHER QUANTITY : 1 INJECTION(S)?OTHER FREQUENCY : ONCE MONTHLY?
     Route: 058
     Dates: start: 20240710, end: 20240710
  2. SLYND [Suspect]
     Active Substance: DROSPIRENONE

REACTIONS (1)
  - Diaphragmatic spasm [None]

NARRATIVE: CASE EVENT DATE: 20240713
